FAERS Safety Report 17915401 (Version 2)
Quarter: 2020Q3

REPORT INFORMATION
  Report Type: Report from Study
  Country: FR (occurrence: FR)
  Receive Date: 20200619
  Receipt Date: 20200727
  Transmission Date: 20201103
  Serious: Yes (Hospitalization, Other)
  Sender: FDA-Public Use
  Company Number: FR-BRISTOL-MYERS SQUIBB COMPANY-BMS-2020-046650

PATIENT
  Age: 86 Year
  Sex: Male

DRUGS (9)
  1. PANTOPRAZOLE [Concomitant]
     Active Substance: PANTOPRAZOLE
     Indication: PROPHYLAXIS AGAINST GASTROINTESTINAL ULCER
     Dosage: 40 MILLIGRAM DAILY
     Route: 048
  2. ANGOR [Concomitant]
     Indication: ANGINA PECTORIS
     Dosage: 5 MILLIGRAM DAILY
     Route: 050
  3. TIMOFEROL [Concomitant]
     Active Substance: ASCORBIC ACID\FERROUS SULFATE
     Indication: ANAEMIA
     Dosage: 200 MILLIGRAM
     Route: 048
  4. POLYSTYRENE SULFONATE SODIUM [Concomitant]
     Active Substance: SODIUM POLYSTYRENE SULFONATE
     Indication: HYPERKALAEMIA
     Dosage: 500 DOSAGE FORM DAILY
     Route: 048
  5. APIXABAN [Suspect]
     Active Substance: APIXABAN
     Indication: PRODUCT USED FOR UNKNOWN INDICATION
     Dosage: 5 MILLIGRAM DAILY
     Route: 048
     Dates: start: 20190418, end: 20191018
  6. FUROSEMIDE. [Concomitant]
     Active Substance: FUROSEMIDE
     Indication: POLYURIA
     Dosage: 20 MILLIGRAM DAILY
     Route: 048
  7. VERAPAMIL [Concomitant]
     Active Substance: VERAPAMIL HYDROCHLORIDE
     Indication: PRODUCT USED FOR UNKNOWN INDICATION
     Dosage: 240 MILLIGRAM DAILY
     Route: 048
  8. PARACETAMOL [Concomitant]
     Active Substance: ACETAMINOPHEN
     Indication: PAIN
     Dosage: 3 DOSAGE FORM DAILY
     Route: 048
  9. ALLOPURINOL. [Concomitant]
     Active Substance: ALLOPURINOL
     Indication: GOUT
     Dosage: 200 MILLIGRAM DAILY
     Route: 048

REACTIONS (2)
  - Renal failure [Unknown]
  - Anaemia [Recovered/Resolved]

NARRATIVE: CASE EVENT DATE: 20191015
